FAERS Safety Report 23426457 (Version 4)
Quarter: 2024Q1

REPORT INFORMATION
  Report Type: Spontaneous
  Country: US (occurrence: US)
  Receive Date: 20240122
  Receipt Date: 20240331
  Transmission Date: 20240409
  Serious: Yes (Other)
  Sender: FDA-Public Use
  Company Number: US-BRISTOL-MYERS SQUIBB COMPANY-2024-008723

PATIENT
  Age: 67 Year
  Sex: Female

DRUGS (3)
  1. LENALIDOMIDE [Suspect]
     Active Substance: LENALIDOMIDE
     Indication: Plasma cell myeloma
     Dosage: TAKE 1 CAPSULE BY MOUTH ON DAYS 1-14 OF EACH 21 DAY CYCLE. TAKE WHOLE W/WATER AT THE SAME TIME EACH
     Route: 048
     Dates: start: 20231228
  2. VELCADE [Suspect]
     Active Substance: BORTEZOMIB
     Indication: Product used for unknown indication
  3. DEXAMETHASONE [Suspect]
     Active Substance: DEXAMETHASONE
     Indication: Product used for unknown indication

REACTIONS (7)
  - Back pain [Not Recovered/Not Resolved]
  - Off label use [Unknown]
  - Tremor [Not Recovered/Not Resolved]
  - Dizziness [Recovered/Resolved]
  - Hypervolaemia [Recovered/Resolved]
  - Malaise [Recovered/Resolved]
  - Paraesthesia oral [Not Recovered/Not Resolved]
